FAERS Safety Report 14557536 (Version 2)
Quarter: 2018Q1

REPORT INFORMATION
  Report Type: Spontaneous
  Country: JP (occurrence: JP)
  Receive Date: 20180221
  Receipt Date: 20180227
  Transmission Date: 20180509
  Serious: Yes (Death, Other)
  Sender: FDA-Public Use
  Company Number: JP-JNJFOC-20180225523

PATIENT
  Age: 82 Year
  Sex: Male

DRUGS (1)
  1. ZYTIGA [Suspect]
     Active Substance: ABIRATERONE ACETATE
     Indication: PRODUCT USED FOR UNKNOWN INDICATION
     Route: 048
     Dates: start: 20171107, end: 20180114

REACTIONS (5)
  - Fall [Fatal]
  - Hypokalaemia [Unknown]
  - Fluid retention [Unknown]
  - Traumatic intracranial haemorrhage [Fatal]
  - Oedema [Unknown]

NARRATIVE: CASE EVENT DATE: 20180114
